FAERS Safety Report 6573778-9 (Version None)
Quarter: 2010Q1

REPORT INFORMATION
  Report Type: 
  Country: None (occurrence: None)
  Receive Date: 20100208
  Receipt Date: 20100129
  Transmission Date: 20100710
  Serious: Yes (Hospitalization)
  Sender: FDA-Public Use
  Company Number: GXKR2010NO01403

PATIENT
  Sex: Female

DRUGS (3)
  1. ALENDRONIC ACID (NGX) [Suspect]
     Dosage: ONCE A WEEK
     Route: 048
     Dates: start: 20040101, end: 20091130
  2. LEVOTHYROXINE SODIUM [Concomitant]
  3. CALCIGRAN [Concomitant]
     Dosage: 500/400 MG/IE

REACTIONS (2)
  - FEMUR FRACTURE [None]
  - PAIN IN EXTREMITY [None]
